FAERS Safety Report 8383449-4 (Version None)
Quarter: 2012Q2

REPORT INFORMATION
  Report Type: 
  Country: None (occurrence: None)
  Receive Date: 20120524
  Receipt Date: 20120521
  Transmission Date: 20120825
  Serious: Yes (Death, Disabling, Other)
  Sender: FDA-Public Use
  Company Number: PHHY2009JP18388

PATIENT
  Sex: Male

DRUGS (7)
  1. ZOLEDRONOC ACID [Suspect]
     Indication: MULTIPLE MYELOMA
     Dosage: 4 MG, QMO
     Route: 042
     Dates: start: 20070926, end: 20091203
  2. KETOPROFEN [Concomitant]
     Indication: MULTIPLE MYELOMA
     Dosage: 30 MG
     Route: 061
     Dates: start: 20070926
  3. MAGNESIUM SULFATE [Concomitant]
     Indication: CONSTIPATION
     Dosage: 1980 MG
     Route: 048
     Dates: start: 20070926
  4. RABEPRAZOLE SODIUM [Concomitant]
     Indication: GASTRIC ULCER
     Dosage: 10 MG
     Route: 048
     Dates: start: 20070926
  5. MUCOSTA [Concomitant]
     Indication: GASTRIC ULCER
     Dosage: 300 MG
     Route: 048
     Dates: start: 20070926
  6. VOLTAREN [Concomitant]
     Indication: MULTIPLE MYELOMA
     Dosage: 75 MG
     Route: 048
     Dates: start: 20070926
  7. LENDORMIN [Concomitant]
     Indication: INSOMNIA
     Dosage: 0.25 MG
     Route: 048
     Dates: start: 20070926

REACTIONS (5)
  - NEOPLASM PROGRESSION [None]
  - DEATH [None]
  - OSTEONECROSIS OF JAW [None]
  - HYPOCALCAEMIA [None]
  - NEOPLASM MALIGNANT [None]
